FAERS Safety Report 5306703-9 (Version None)
Quarter: 2007Q2

REPORT INFORMATION
  Report Type: 
  Country: None (occurrence: None)
  Receive Date: 20070424
  Receipt Date: 20070413
  Transmission Date: 20071010
  Serious: Yes (Hospitalization, Other)
  Sender: FDA-Public Use
  Company Number: US-PFIZER INC-2007031049

PATIENT
  Sex: Female
  Weight: 41 kg

DRUGS (1)
  1. SOMATROPIN [Suspect]
     Indication: TURNER'S SYNDROME

REACTIONS (3)
  - BONE CYST [None]
  - FALL [None]
  - HIP FRACTURE [None]
